FAERS Safety Report 13843689 (Version 2)
Quarter: 2018Q1

REPORT INFORMATION
  Report Type: Spontaneous
  Country: US (occurrence: US)
  Receive Date: 20170808
  Receipt Date: 20180228
  Transmission Date: 20180508
  Serious: No
  Sender: FDA-Public Use
  Company Number: US-ORPHAN EUROPE-2024330

PATIENT
  Age: 11 Year
  Sex: Female

DRUGS (2)
  1. VITAMIN NOS [Concomitant]
  2. CYSTADANE [Suspect]
     Active Substance: BETAINE
     Indication: HOMOCYSTINURIA
     Route: 048
     Dates: start: 200606

REACTIONS (5)
  - Urinary tract infection [Recovered/Resolved]
  - Muscle spasms [Recovered/Resolved]
  - Inappropriate schedule of drug administration [Recovered/Resolved]
  - Pollakiuria [Recovered/Resolved]
  - Vulvovaginal pruritus [Recovered/Resolved]

NARRATIVE: CASE EVENT DATE: 201706
